FAERS Safety Report 9496150 (Version 1)
Quarter: 2013Q3

REPORT INFORMATION
  Report Type: Spontaneous
  Country: IN (occurrence: IN)
  Receive Date: 20130904
  Receipt Date: 20130904
  Transmission Date: 20140515
  Serious: Yes (Death, Hospitalization)
  Sender: FDA-Public Use
  Company Number: IN-009507513-1309IND000202

PATIENT
  Age: 50 Year
  Sex: Female

DRUGS (2)
  1. INTRONA [Suspect]
     Dosage: UNK UNK, TIW
  2. REBETOL [Suspect]
     Dosage: UNK
     Route: 048

REACTIONS (3)
  - Death [Fatal]
  - Nephropathy [Unknown]
  - Overdose [Unknown]
